FAERS Safety Report 14900137 (Version 1)
Quarter: 2018Q2

REPORT INFORMATION
  Report Type: Spontaneous
  Country: FR (occurrence: FR)
  Receive Date: 20180516
  Receipt Date: 20180516
  Transmission Date: 20180711
  Serious: Yes (Other)
  Sender: FDA-Public Use
  Company Number: FR-MERCK KGAA-2047892

PATIENT
  Age: 63 Year
  Sex: Female
  Weight: 69 kg

DRUGS (1)
  1. NOVOTHYROX [Suspect]
     Active Substance: LEVOTHYROXINE SODIUM
     Indication: POST PROCEDURAL HYPOTHYROIDISM

REACTIONS (30)
  - Impaired driving ability [None]
  - Headache [Not Recovered/Not Resolved]
  - Alopecia [Not Recovered/Not Resolved]
  - Vertigo [Not Recovered/Not Resolved]
  - Fall [Not Recovered/Not Resolved]
  - Dysphonia [None]
  - Cognitive disorder [None]
  - Pruritus [None]
  - Malaise [Not Recovered/Not Resolved]
  - Madarosis [None]
  - Pyrexia [None]
  - Dyspnoea [None]
  - Depressed mood [None]
  - Loss of personal independence in daily activities [None]
  - Soft tissue injury [None]
  - Hot flush [Not Recovered/Not Resolved]
  - Diarrhoea [Not Recovered/Not Resolved]
  - Muscle spasms [None]
  - Weight increased [Not Recovered/Not Resolved]
  - Dry skin [Not Recovered/Not Resolved]
  - Dry mouth [Not Recovered/Not Resolved]
  - Visual impairment [Not Recovered/Not Resolved]
  - Abdominal pain [Not Recovered/Not Resolved]
  - Social avoidant behaviour [None]
  - Contusion [None]
  - Fatigue [Not Recovered/Not Resolved]
  - Arthropathy [None]
  - Impaired work ability [None]
  - Arrhythmia [Not Recovered/Not Resolved]
  - Myalgia [None]

NARRATIVE: CASE EVENT DATE: 201706
